FAERS Safety Report 9321812 (Version 1)
Quarter: 2013Q2

REPORT INFORMATION
  Report Type: Spontaneous
  Country: CH (occurrence: CH)
  Receive Date: 20130531
  Receipt Date: 20130531
  Transmission Date: 20140414
  Serious: Yes (Other)
  Sender: FDA-Public Use
  Company Number: CH-009507513-1305CHE016296

PATIENT
  Sex: 0

DRUGS (1)
  1. NOXAFIL [Suspect]
     Route: 048

REACTIONS (1)
  - Renal failure [Unknown]
